FAERS Safety Report 19489333 (Version 1)
Quarter: 2021Q3

REPORT INFORMATION
  Report Type: Spontaneous
  Country: LU (occurrence: LU)
  Receive Date: 20210703
  Receipt Date: 20210703
  Transmission Date: 20211014
  Serious: Yes (Hospitalization)
  Sender: FDA-Public Use
  Company Number: LU-TEVA-2021-LU-1928553

PATIENT
  Age: 71 Year
  Sex: Female
  Weight: 56.6 kg

DRUGS (5)
  1. PACLITAXEL TEVA [Suspect]
     Active Substance: PACLITAXEL
     Indication: BREAST CANCER
     Dosage: FIRST COURSE,126.02MG
     Route: 041
     Dates: start: 20210609, end: 20210609
  2. DEXAMETHASONE. [Concomitant]
     Active Substance: DEXAMETHASONE
     Indication: PREMEDICATION
     Dosage: 8MG
     Route: 042
     Dates: start: 20210609, end: 20210609
  3. DEXCHLORPHENIRAMINE [Concomitant]
     Active Substance: DEXCHLORPHENIRAMINE
     Indication: PREMEDICATION
     Dosage: 5MG
     Route: 042
     Dates: start: 20210609, end: 20210609
  4. CIMETIDINE [Concomitant]
     Active Substance: CIMETIDINE
     Indication: PREMEDICATION
     Dosage: 400MG
     Route: 048
     Dates: start: 20210609, end: 20210609
  5. ONDANSETRON [Concomitant]
     Active Substance: ONDANSETRON
     Indication: PREMEDICATION
     Dosage: 8MG
     Route: 042
     Dates: start: 20210609, end: 20210609

REACTIONS (3)
  - Choking sensation [Recovered/Resolved]
  - Back pain [Recovered/Resolved]
  - Infusion related reaction [Recovered/Resolved]

NARRATIVE: CASE EVENT DATE: 20210609
